FAERS Safety Report 6816171-3 (Version None)
Quarter: 2010Q3

REPORT INFORMATION
  Report Type: 
  Country: None (occurrence: None)
  Receive Date: 20100705
  Receipt Date: 20100621
  Transmission Date: 20110219
  Serious: Yes (Life-Threatening, Hospitalization)
  Sender: FDA-Public Use
  Company Number: RU-RANBAXY-2010R3-35328

PATIENT

DRUGS (2)
  1. CEFTRIAXONE [Suspect]
     Indication: PRODUCT USED FOR UNKNOWN INDICATION
     Route: 042
  2. AMOXICILLIN AND CLAVULANATE POTASSIUM [Suspect]
     Indication: PNEUMONIA
     Route: 042

REACTIONS (6)
  - ANXIETY [None]
  - ASTHENIA [None]
  - CIRCULATORY COLLAPSE [None]
  - DYSPNOEA [None]
  - FEAR [None]
  - RASH [None]
